FAERS Safety Report 6873573-7 (Version None)
Quarter: 2010Q3

REPORT INFORMATION
  Report Type: 
  Country: None (occurrence: None)
  Receive Date: 20100723
  Receipt Date: 20090218
  Transmission Date: 20110219
  Serious: No
  Sender: FDA-Public Use
  Company Number: US-PFIZER INC-2009154326

PATIENT
  Sex: Female
  Weight: 68.934 kg

DRUGS (3)
  1. CHANTIX [Suspect]
     Indication: SMOKING CESSATION THERAPY
     Dosage: 1 MG, 2X/DAY
     Route: 048
     Dates: start: 20081113
  2. VITAMINS [Concomitant]
  3. ASPIRIN [Concomitant]

REACTIONS (1)
  - DYSPHONIA [None]
